FAERS Safety Report 9632749 (Version 2)
Quarter: 2013Q4

REPORT INFORMATION
  Report Type: Report from Study
  Country: US (occurrence: US)
  Receive Date: 20131018
  Receipt Date: 20131028
  Transmission Date: 20140711
  Serious: Yes (Hospitalization)
  Sender: FDA-Public Use
  Company Number: US-GLAXOSMITHKLINE-A1045840A

PATIENT
  Age: 47 Year
  Sex: Female
  Weight: 75.3 kg

DRUGS (3)
  1. OFATUMUMAB [Suspect]
     Indication: B-CELL LYMPHOMA
     Dosage: 1000MG CYCLIC
     Route: 042
     Dates: start: 20130212
  2. BENDAMUSTINE [Suspect]
     Indication: B-CELL LYMPHOMA
     Dosage: 90MGM2 CYCLIC
     Route: 042
     Dates: start: 20130212
  3. F-18 FLUORODEOXYGLUCOSE [Suspect]
     Indication: B-CELL LYMPHOMA
     Route: 040

REACTIONS (1)
  - Febrile neutropenia [Recovered/Resolved]
